FAERS Safety Report 17236593 (Version 1)
Quarter: 2020Q1

REPORT INFORMATION
  Report Type: Spontaneous
  Country: FR (occurrence: FR)
  Receive Date: 20200106
  Receipt Date: 20200106
  Transmission Date: 20200409
  Serious: Yes (Life-Threatening, Hospitalization, Other)
  Sender: FDA-Public Use
  Company Number: FR-PURACAP PHARMACEUTICAL LLC-2019EPC00368

PATIENT
  Age: 58 Year
  Sex: Female

DRUGS (6)
  1. NAPROXEN SODIUM. [Suspect]
     Active Substance: NAPROXEN SODIUM
     Dosage: 26 G, ONCE
     Route: 048
  2. CITALOPRAM [Concomitant]
     Active Substance: CITALOPRAM HYDROBROMIDE
     Dosage: 10 MG
     Route: 065
  3. ZOPICLONE [Suspect]
     Active Substance: ZOPICLONE
     Dosage: 7.5 MG
     Route: 065
  4. ACEBUTOLOL [Concomitant]
     Active Substance: ACEBUTOLOL
     Dosage: 200 MG
     Route: 065
  5. NAPROXEN SODIUM. [Suspect]
     Active Substance: NAPROXEN SODIUM
     Dosage: 550 MG
     Route: 065
  6. OXAZEPAM. [Suspect]
     Active Substance: OXAZEPAM
     Dosage: 50 MG
     Route: 065

REACTIONS (9)
  - Speech disorder [Recovered/Resolved]
  - Suicide attempt [Recovered/Resolved]
  - Intentional overdose [Recovered/Resolved]
  - Toxicity to various agents [Recovered/Resolved]
  - Hypocoagulable state [Recovered/Resolved]
  - Coma [Recovered/Resolved]
  - Shock [Recovered/Resolved]
  - Psychomotor retardation [Recovered/Resolved]
  - Thrombocytopenia [Recovered/Resolved]
